FAERS Safety Report 20081349 (Version 1)
Quarter: 2021Q4

REPORT INFORMATION
  Report Type: Spontaneous
  Country: US (occurrence: US)
  Receive Date: 20211117
  Receipt Date: 20211117
  Transmission Date: 20220303
  Serious: Yes (Other)
  Sender: FDA-Public Use
  Company Number: US-SA-SAC20211115000868

PATIENT
  Age: 70 Year
  Sex: Male

DRUGS (2)
  1. ZANTAC [Suspect]
     Active Substance: RANITIDINE HYDROCHLORIDE
     Indication: Dyspepsia
     Dosage: UNK, QW
     Dates: start: 199801, end: 201901
  2. ZANTAC [Suspect]
     Active Substance: RANITIDINE HYDROCHLORIDE
     Indication: Gastrooesophageal reflux disease

REACTIONS (7)
  - Bladder cancer stage II [Recovering/Resolving]
  - Prostate cancer stage 0 [Unknown]
  - Lung neoplasm malignant [Unknown]
  - Gastric cancer stage IV [Unknown]
  - Gastrointestinal carcinoma [Unknown]
  - Hepatic cancer [Unknown]
  - Small intestine carcinoma stage IV [Unknown]

NARRATIVE: CASE EVENT DATE: 20030101
